FAERS Safety Report 25660373 (Version 1)
Quarter: 2025Q3

REPORT INFORMATION
  Report Type: Report from Study
  Country: US (occurrence: US)
  Receive Date: 20250808
  Receipt Date: 20250808
  Transmission Date: 20251021
  Serious: Yes (Death)
  Sender: ROCHE
  Company Number: US-ROCHE-10000349427

PATIENT
  Age: 81 Year
  Sex: Male

DRUGS (15)
  1. XOLAIR [Suspect]
     Active Substance: OMALIZUMAB
     Indication: Chronic spontaneous urticaria
     Route: 058
  2. XOLAIR [Suspect]
     Active Substance: OMALIZUMAB
  3. AMLODIPINE [Concomitant]
     Active Substance: AMLODIPINE BESYLATE
  4. LIPITOR [Concomitant]
     Active Substance: ATORVASTATIN CALCIUM
  5. DEXILANT [Concomitant]
     Active Substance: DEXLANSOPRAZOLE
  6. EPIPEN [Concomitant]
     Active Substance: EPINEPHRINE
  7. PEPCID [Concomitant]
     Active Substance: FAMOTIDINE
  8. SYNTHROID [Concomitant]
     Active Substance: LEVOTHYROXINE SODIUM
  9. LISINOPRIL [Concomitant]
     Active Substance: LISINOPRIL
  10. TOPROL XL [Concomitant]
     Active Substance: METOPROLOL SUCCINATE
  11. SINGULAIR [Concomitant]
     Active Substance: MONTELUKAST SODIUM
  12. TRELEGY ELLIPTA [Concomitant]
     Active Substance: FLUTICASONE FUROATE\UMECLIDINIUM BROMIDE\VILANTEROL TRIFENATATE
  13. ALBUTEROL [Concomitant]
     Active Substance: ALBUTEROL
  14. XARELTO [Concomitant]
     Active Substance: RIVAROXABAN
  15. VITAMIN B12 [Concomitant]
     Active Substance: CYANOCOBALAMIN

REACTIONS (1)
  - Death [Fatal]

NARRATIVE: CASE EVENT DATE: 20241101
